FAERS Safety Report 10154463 (Version 1)
Quarter: 2014Q2

REPORT INFORMATION
  Report Type: Spontaneous
  Country: FR (occurrence: FR)
  Receive Date: 20140506
  Receipt Date: 20140506
  Transmission Date: 20141212
  Serious: Yes (Hospitalization)
  Sender: FDA-Public Use
  Company Number: FR-ELI_LILLY_AND_COMPANY-FR201404008883

PATIENT
  Age: 64 Year
  Sex: Female

DRUGS (14)
  1. CYMBALTA [Suspect]
     Indication: PRODUCT USED FOR UNKNOWN INDICATION
     Dosage: 60MG, UNK
     Route: 048
     Dates: start: 20131101, end: 20131101
  2. TRAMADOL [Suspect]
     Indication: PRODUCT USED FOR UNKNOWN INDICATION
     Dosage: 50MG/ORALLY/ 7 TABS
     Route: 048
     Dates: start: 20131101, end: 20131101
  3. SKENAN [Suspect]
     Indication: PRODUCT USED FOR UNKNOWN INDICATION
     Dosage: 60MG/ X 10 CAPSULES
     Route: 048
     Dates: start: 20131101, end: 20131101
  4. BROMAZEPAM [Suspect]
     Indication: PRODUCT USED FOR UNKNOWN INDICATION
     Dosage: UNK UNK, UNKNOWN
     Route: 048
     Dates: start: 20131101, end: 20131101
  5. METFORMIN [Concomitant]
     Indication: PRODUCT USED FOR UNKNOWN INDICATION
     Dosage: 850MG/BID
  6. THERALENE [Concomitant]
     Indication: PRODUCT USED FOR UNKNOWN INDICATION
     Dosage: 35GTTS/QPM
  7. STILNOX [Concomitant]
     Indication: PRODUCT USED FOR UNKNOWN INDICATION
     Dosage: 10MG, UNK
  8. ATARAX [Concomitant]
     Indication: PRODUCT USED FOR UNKNOWN INDICATION
     Dosage: 25MG BID
  9. DELURSAN [Concomitant]
     Indication: PRODUCT USED FOR UNKNOWN INDICATION
  10. KARDEGIC [Concomitant]
     Indication: PRODUCT USED FOR UNKNOWN INDICATION
  11. OMEPRAZOL [Concomitant]
     Indication: PRODUCT USED FOR UNKNOWN INDICATION
  12. RAMPRIL [Concomitant]
     Indication: PRODUCT USED FOR UNKNOWN INDICATION
  13. FUROSEMIDE [Concomitant]
     Indication: PRODUCT USED FOR UNKNOWN INDICATION
  14. FENOFIBRATE [Concomitant]
     Indication: PRODUCT USED FOR UNKNOWN INDICATION

REACTIONS (4)
  - Coma [Recovered/Resolved]
  - Pneumonia aspiration [Recovering/Resolving]
  - Respiratory distress [Recovered/Resolved]
  - Toxicity to various agents [Recovered/Resolved]
